FAERS Safety Report 25463174 (Version 1)
Quarter: 2025Q2

REPORT INFORMATION
  Report Type: Spontaneous
  Country: US (occurrence: None)
  Receive Date: 20250612
  Receipt Date: 20250612
  Transmission Date: 20250717
  Serious: No
  Sender: FDA-CTU
  Company Number: None

PATIENT

DRUGS (1)
  1. OCREVUS [Suspect]
     Active Substance: OCRELIZUMAB

REACTIONS (5)
  - Illness [None]
  - Ear, nose and throat examination abnormal [None]
  - Posture abnormal [None]
  - Intentional dose omission [None]
  - Musculoskeletal disorder [None]
